FAERS Safety Report 8784323 (Version 2)
Quarter: 2012Q4

REPORT INFORMATION
  Report Type: 
  Country: FR (occurrence: FR)
  Receive Date: 20120913
  Receipt Date: 20121231
  Transmission Date: 20130627
  Serious: Yes (Hospitalization)
  Sender: FDA-Public Use
  Company Number: FR-VERTEX PHARMACEUTICAL INC.-000000000000000036

PATIENT
  Age: 50 Year
  Sex: Male
  Weight: 69 kg

DRUGS (9)
  1. VX-950 (TELAPREVIR) [Suspect]
     Indication: HEPATITIS C
     Dosage: 750 mg, tid
     Dates: start: 20110927, end: 20111220
  2. INTERFERON ALFA-2A [Suspect]
     Indication: HEPATITIS C
     Dosage: 360 ?g, qw
     Dates: start: 20110927, end: 20111224
  3. ATAZANAVIR [Suspect]
     Indication: HIV INFECTION
     Dosage: 400 mg, qd
     Dates: start: 20060304
  4. RIBAVIRIN [Suspect]
     Indication: HEPATITIS C
     Dosage: 600 mg, bid
     Dates: start: 20110927, end: 20111224
  5. AMOXICILLINE [Suspect]
     Indication: PRODUCT USED FOR UNKNOWN INDICATION
     Dates: start: 20111111, end: 20111116
  6. TENOFOVIR [Concomitant]
     Indication: HIV INFECTION
     Dosage: 245 mg, qd
     Dates: start: 20030208
  7. EMTRICITABINE [Concomitant]
     Indication: HIV INFECTION
     Dosage: 200 mg, qd
     Dates: start: 20060304
  8. PROPRANOLOL [Concomitant]
     Dates: start: 20110925
  9. HIV MEDICATION [Concomitant]
     Indication: HIV INFECTION
     Dosage: 30000 mg, weekly
     Dates: start: 20111108

REACTIONS (3)
  - Eosinophilia [Recovered/Resolved]
  - Drug reaction with eosinophilia and systemic symptoms [Recovered/Resolved]
  - Rash [Recovered/Resolved]
